FAERS Safety Report 20744762 (Version 2)
Quarter: 2022Q2

REPORT INFORMATION
  Report Type: Report from Study
  Country: BR (occurrence: None)
  Receive Date: 20220425
  Receipt Date: 20220613
  Transmission Date: 20220720
  Serious: Yes (Hospitalization)
  Sender: FDA-Public Use
  Company Number: BR-Merck KGaA-9055365

PATIENT
  Age: 28 Year
  Sex: Female

DRUGS (6)
  1. REBIF [Suspect]
     Active Substance: INTERFERON BETA-1A
     Indication: Multiple sclerosis
     Route: 058
     Dates: start: 20161006, end: 20190731
  2. INTERFERON BETA-1A [Suspect]
     Active Substance: INTERFERON BETA-1A
     Indication: Multiple sclerosis
     Route: 058
     Dates: start: 20190802, end: 20211112
  3. INTERFERON BETA-1A [Suspect]
     Active Substance: INTERFERON BETA-1A
     Route: 058
     Dates: start: 20211201, end: 20220201
  4. INTERFERON BETA-1A [Suspect]
     Active Substance: INTERFERON BETA-1A
     Route: 058
     Dates: start: 20220211
  5. ERGOCALCIFEROL [Concomitant]
     Active Substance: ERGOCALCIFEROL
     Indication: Product used for unknown indication
  6. AMANTADINE HYDROCHLORIDE [Concomitant]
     Active Substance: AMANTADINE HYDROCHLORIDE
     Indication: Product used for unknown indication

REACTIONS (7)
  - Cyst [Not Recovered/Not Resolved]
  - Injection site erythema [Recovered/Resolved]
  - Injection site pruritus [Recovered/Resolved]
  - Injection site pain [Not Recovered/Not Resolved]
  - Injection site swelling [Recovered/Resolved]
  - Injection site inflammation [Recovered/Resolved]
  - Wrong technique in product usage process [Unknown]

NARRATIVE: CASE EVENT DATE: 20190101
